FAERS Safety Report 15619485 (Version 1)
Quarter: 2018Q4

REPORT INFORMATION
  Report Type: Report from Study
  Country: ES (occurrence: ES)
  Receive Date: 20181115
  Receipt Date: 20181115
  Transmission Date: 20190205
  Serious: Yes (Other)
  Sender: FDA-Public Use
  Company Number: ES-ACCORD-092062

PATIENT
  Age: 10 Year
  Sex: Male
  Weight: 29.7 kg

DRUGS (1)
  1. METHOTREXATE. [Suspect]
     Active Substance: METHOTREXATE
     Indication: ACUTE BIPHENOTYPIC LEUKAEMIA
     Dosage: 12 MG DAY 1 AND DAY 5
     Route: 037
     Dates: start: 20180907, end: 20180913

REACTIONS (1)
  - Meningitis aseptic [Recovered/Resolved]

NARRATIVE: CASE EVENT DATE: 20180907
